FAERS Safety Report 18358979 (Version 1)
Quarter: 2020Q4

REPORT INFORMATION
  Report Type: Spontaneous
  Country: US (occurrence: US)
  Receive Date: 20201007
  Receipt Date: 20201007
  Transmission Date: 20210114
  Serious: No
  Sender: FDA-Public Use
  Company Number: None

PATIENT
  Age: 29 Year
  Sex: Male
  Weight: 108 kg

DRUGS (3)
  1. AMPHETAMINE-DEXTROAMPHETAMINE [Suspect]
     Active Substance: AMPHETAMINE SULFATE\DEXTROAMPHETAMINE
     Indication: ATTENTION DEFICIT HYPERACTIVITY DISORDER
     Dosage: ?          QUANTITY:60 TABLET(S);?
     Route: 048
     Dates: start: 20201004, end: 20201007
  2. CAFFEINE 100 MG [Concomitant]
  3. MULTI VITMAINS FOR MEN [Concomitant]

REACTIONS (6)
  - Product substitution issue [None]
  - Lethargy [None]
  - Nausea [None]
  - Disturbance in attention [None]
  - Restlessness [None]
  - Feeling abnormal [None]

NARRATIVE: CASE EVENT DATE: 20201007
